FAERS Safety Report 13137246 (Version 1)
Quarter: 2017Q1

REPORT INFORMATION
  Report Type: Spontaneous
  Country: US (occurrence: US)
  Receive Date: 20170120
  Receipt Date: 20170120
  Transmission Date: 20170428
  Serious: No
  Sender: FDA-Public Use
  Company Number: None

PATIENT
  Sex: Male

DRUGS (1)
  1. SUTENT [Suspect]
     Active Substance: SUNITINIB MALATE
     Dosage: 25 MG 1 PO DAILY FOR 4 WEEKS THEN OFF; TO TOTAL 2 FILLS ONLY PO
     Route: 048
     Dates: start: 20160920, end: 20161209

REACTIONS (1)
  - Dysgeusia [None]
